FAERS Safety Report 7868030-5 (Version None)
Quarter: 2011Q4

REPORT INFORMATION
  Report Type: 
  Country: None (occurrence: None)
  Receive Date: 20111028
  Receipt Date: 20111024
  Transmission Date: 20120403
  Serious: No
  Sender: FDA-Public Use
  Company Number: US-B.I. PHARMACEUTICALS,INC./RIDGEFIELD-2011-BP-24151BP

PATIENT
  Sex: Male

DRUGS (3)
  1. BLOOD PRESSURE MEDICATIONS [Concomitant]
     Indication: HYPERTENSION
  2. PRADAXA [Suspect]
     Indication: CEREBROVASCULAR ACCIDENT PROPHYLAXIS
     Dosage: 150 MG
     Route: 048
     Dates: start: 20110901, end: 20110924
  3. CHOLESTEROL MEDICATIONS [Concomitant]
     Indication: BLOOD CHOLESTEROL ABNORMAL

REACTIONS (2)
  - ABDOMINAL DISCOMFORT [None]
  - PAIN [None]
